FAERS Safety Report 9150898 (Version 1)
Quarter: 2013Q1

REPORT INFORMATION
  Report Type: Spontaneous
  Country: FR (occurrence: FR)
  Receive Date: 20130308
  Receipt Date: 20130308
  Transmission Date: 20140127
  Serious: Yes (Other)
  Sender: FDA-Public Use
  Company Number: FR-PFIZER INC-2013074424

PATIENT
  Age: 82 Year
  Sex: Male

DRUGS (12)
  1. ZYVOXID [Suspect]
     Dosage: 600 MG, 2X/DAY
     Route: 042
     Dates: start: 20130215, end: 20130215
  2. TAZOCILLINE [Concomitant]
     Dosage: 4 G, UNK
     Route: 042
     Dates: start: 20130215
  3. FLAGYL [Concomitant]
     Dosage: 500 MG, UNK
     Route: 042
     Dates: start: 20130215
  4. ROVAMYCINE [Concomitant]
     Dosage: 3 MILLIONIU, UNK
     Route: 042
     Dates: start: 20130215
  5. ROVAMYCINE [Concomitant]
     Dosage: 1.5 MILLIONIU, UNK
  6. HYDROCORTISONE [Concomitant]
     Dosage: 20 MG, UNK
     Dates: start: 20130215
  7. FOLIC ACID [Concomitant]
     Dosage: 5 MG, UNK
     Dates: start: 20130215
  8. NOVORAPID [Concomitant]
     Dosage: 2 IU, UNK
     Dates: start: 20130215
  9. PERFALGAN [Concomitant]
     Dosage: 1 G, UNK
     Dates: start: 20130214
  10. VENTOLINE [Concomitant]
     Dosage: UNK
     Route: 049
     Dates: start: 20130214
  11. ATROVENT [Concomitant]
     Dosage: UNK
     Route: 049
     Dates: start: 20130214
  12. ROCEPHINE [Concomitant]
     Dosage: 2 G, UNK
     Dates: start: 20130214

REACTIONS (2)
  - Rash erythematous [Recovered/Resolved]
  - Palatal oedema [Recovered/Resolved]
